FAERS Safety Report 23415489 (Version 1)
Quarter: 2024Q1

REPORT INFORMATION
  Report Type: Report from Study
  Country: CA (occurrence: CA)
  Receive Date: 20240118
  Receipt Date: 20240118
  Transmission Date: 20240410
  Serious: Yes (Other)
  Sender: FDA-Public Use
  Company Number: CA-CELLTRION INC.-2024CA001068

PATIENT

DRUGS (7)
  1. TRUXIMA [Suspect]
     Active Substance: RITUXIMAB-ABBS
     Indication: Vasculitis
     Dosage: 1000 MG
     Route: 042
     Dates: start: 20220426
  2. AMLODIPINE [Concomitant]
     Active Substance: AMLODIPINE BESYLATE
     Dosage: 2.5 MG, DAILY
  3. DAPAGLIFLOZIN [Concomitant]
     Active Substance: DAPAGLIFLOZIN
     Dosage: 10 MG, DAILY
  4. METHOTREXATE SODIUM [Concomitant]
     Active Substance: METHOTREXATE SODIUM
     Dosage: 25 MG, WEEKLY
  5. METFORMIN [Concomitant]
     Active Substance: METFORMIN HYDROCHLORIDE
     Dosage: 500 MG, 2X DAILY
  6. LEFLUNOMIDE [Concomitant]
     Active Substance: LEFLUNOMIDE
     Dosage: 10 MG, DAILY
  7. CANDESARTAN [Concomitant]
     Active Substance: CANDESARTAN
     Dosage: 16 MG, DAILY

REACTIONS (3)
  - Type 2 diabetes mellitus [Unknown]
  - Malaise [Recovering/Resolving]
  - Therapeutic response shortened [Unknown]

NARRATIVE: CASE EVENT DATE: 20231001
